FAERS Safety Report 21566842 (Version 4)
Quarter: 2023Q1

REPORT INFORMATION
  Report Type: Report from Study
  Country: CA (occurrence: CA)
  Receive Date: 20221108
  Receipt Date: 20230130
  Transmission Date: 20230418
  Serious: Yes (Other)
  Sender: FDA-Public Use
  Company Number: CA-OTSUKA-2022_040963

PATIENT
  Sex: Male

DRUGS (2)
  1. CEDAZURIDINE\DECITABINE [Suspect]
     Active Substance: CEDAZURIDINE\DECITABINE
     Indication: Myelodysplastic syndrome
     Dosage: UNK (35 MG DECITABINE AND 100 MG CEDAZURIDINE)
     Route: 065
     Dates: start: 20220804
  2. CEDAZURIDINE\DECITABINE [Suspect]
     Active Substance: CEDAZURIDINE\DECITABINE
     Dosage: UNK (FOUR TABLETS)
     Route: 065

REACTIONS (7)
  - Platelet transfusion [Unknown]
  - Transfusion [Unknown]
  - Neutrophil count decreased [Unknown]
  - Biliary colic [Unknown]
  - Full blood count abnormal [Unknown]
  - Stomatitis [Unknown]
  - Haemoglobin decreased [Unknown]
